FAERS Safety Report 11861959 (Version 1)
Quarter: 2015Q4

REPORT INFORMATION
  Report Type: Spontaneous
  Country: US (occurrence: US)
  Receive Date: 20151222
  Receipt Date: 20151222
  Transmission Date: 20160305
  Serious: No
  Sender: FDA-Public Use
  Company Number: US-ROCHE-591339

PATIENT
  Sex: Male

DRUGS (10)
  1. COREG [Concomitant]
     Active Substance: CARVEDILOL
     Route: 065
  2. OXYCODONE [Concomitant]
     Active Substance: OXYCODONE
     Route: 065
  3. PEGASYS [Suspect]
     Active Substance: PEGINTERFERON ALFA-2A
     Route: 065
  4. RIBASPHERE [Suspect]
     Active Substance: RIBAVIRIN
     Indication: HEPATITIS C
     Route: 065
  5. TAPAZOLE [Concomitant]
     Active Substance: METHIMAZOLE
     Dosage: DRUG REPORTED AS ^TAPPOZOLE^
     Route: 065
  6. NEXIUM [Concomitant]
     Active Substance: ESOMEPRAZOLE MAGNESIUM
     Route: 065
  7. COPEGUS [Suspect]
     Active Substance: RIBAVIRIN
     Indication: HEPATITIS C
     Dosage: DIVIDED DOSES
     Route: 048
  8. PEGASYS [Suspect]
     Active Substance: PEGINTERFERON ALFA-2A
     Indication: HEPATITIS C
     Route: 065
  9. DOXYCYCLINE. [Concomitant]
     Active Substance: DOXYCYCLINE
     Route: 065
  10. KLONOPIN [Concomitant]
     Active Substance: CLONAZEPAM
     Route: 065

REACTIONS (15)
  - Monocyte count increased [Unknown]
  - Visual impairment [Unknown]
  - Anxiety [Recovering/Resolving]
  - White blood cell count decreased [Unknown]
  - Haemorrhoids [Unknown]
  - Visual acuity reduced [Unknown]
  - Diarrhoea [Unknown]
  - Skin exfoliation [Unknown]
  - Abdominal pain [Unknown]
  - Fear [Recovering/Resolving]
  - Chills [Unknown]
  - Prostatomegaly [Recovered/Resolved]
  - Alopecia [Recovered/Resolved]
  - Influenza like illness [Unknown]
  - Weight decreased [Recovered/Resolved]
